FAERS Safety Report 22388348 (Version 5)
Quarter: 2024Q3

REPORT INFORMATION
  Report Type: Spontaneous
  Country: US (occurrence: US)
  Receive Date: 20230531
  Receipt Date: 20240821
  Transmission Date: 20241016
  Serious: No
  Sender: AMGEN
  Company Number: US-AMGEN-USASP2023093060

PATIENT
  Age: 77 Year
  Sex: Female

DRUGS (5)
  1. PROLIA [Suspect]
     Active Substance: DENOSUMAB
     Indication: Osteoporosis postmenopausal
     Dosage: UNK, Q6MO
     Route: 065
     Dates: start: 201909
  2. MONISTAT [Concomitant]
     Active Substance: MICONAZOLE NITRATE
  3. IRBESARTAN [Concomitant]
     Active Substance: IRBESARTAN
  4. FELODIPINE [Concomitant]
     Active Substance: FELODIPINE
  5. RESTASIS [Concomitant]
     Active Substance: CYCLOSPORINE

REACTIONS (6)
  - COVID-19 [Unknown]
  - Vulvovaginal mycotic infection [Unknown]
  - High density lipoprotein increased [Unknown]
  - Therapy interrupted [Unknown]
  - Blood cholesterol increased [Unknown]
  - Constipation [Recovered/Resolved]

NARRATIVE: CASE EVENT DATE: 20230101
